FAERS Safety Report 14862242 (Version 3)
Quarter: 2018Q3

REPORT INFORMATION
  Report Type: Report from Study
  Country: US (occurrence: US)
  Receive Date: 20180508
  Receipt Date: 20180724
  Transmission Date: 20181010
  Serious: Yes (Other)
  Sender: FDA-Public Use
  Company Number: US-UCBSA-2018018818

PATIENT
  Age: 72 Year
  Sex: Female

DRUGS (2)
  1. BRIVIACT [Suspect]
     Active Substance: BRIVARACETAM
     Indication: PARTIAL SEIZURES
     Dosage: 25 MG 1 TAB QAM AND 2 TABS QPM, 2X/DAY (BID)
     Route: 048
     Dates: start: 20160908
  2. LACOSAMIDE. [Suspect]
     Active Substance: LACOSAMIDE
     Indication: PARTIAL SEIZURES
     Dosage: 150 MG HALF TABLET QAM AND 1 TAB QPM, 2X/DAY (BID)
     Route: 048
     Dates: start: 20160908

REACTIONS (2)
  - Off label use [Unknown]
  - Iridotomy [Recovered/Resolved]

NARRATIVE: CASE EVENT DATE: 20160908
